FAERS Safety Report 8719710 (Version 2)
Quarter: 2012Q4

REPORT INFORMATION
  Report Type: 
  Country: MX (occurrence: MX)
  Receive Date: 20120813
  Receipt Date: 20120926
  Transmission Date: 20130627
  Serious: Yes (Hospitalization, Other)
  Sender: FDA-Public Use
  Company Number: PHHY2012MX069089

PATIENT
  Age: 68 Year
  Sex: Female

DRUGS (11)
  1. AKSPRI [Suspect]
     Indication: DIABETES MELLITUS
     Dosage: 1 DF (500 mg), Daily
     Dates: start: 2001
  2. VOLTAREN [Suspect]
     Indication: PAIN
     Dosage: UNK UKN, UNK
  3. CO-DIOVAN [Suspect]
     Indication: HYPERTENSION
     Dosage: 2 DF (80 mg vals and 12.5 mg hctz), Daily
  4. TENORMIN [Concomitant]
     Indication: HYPERTENSION
     Dosage: 2 DF, Daily
     Dates: start: 2001
  5. ASPIRINA [Concomitant]
     Indication: INFARCTION
     Dosage: 1 DF, Daily
     Dates: start: 200007
  6. PANTOZOL [Concomitant]
     Indication: GASTRITIS
     Dosage: 2 DF, daily
     Dates: start: 2001
  7. DIOSMIN W/HESPERIDIN [Concomitant]
     Indication: CARDIOVASCULAR DISORDER
     Dosage: 1 DF, Daily
     Dates: start: 2001
  8. ELATEC [Concomitant]
     Dosage: 1 DF, daily
     Dates: start: 2001
  9. OSCAL [Concomitant]
     Indication: BONE DECALCIFICATION
     Dosage: 1 DF, daily
     Dates: start: 2001
  10. PANCREOFLAT [Concomitant]
     Indication: GASTRITIS
     Dosage: 1 DF,daily
     Dates: start: 2011
  11. ELANTAN [Concomitant]
     Indication: VASODILATATION
     Dosage: 2 DF, UNK
     Dates: start: 2001

REACTIONS (11)
  - Gastritis [Unknown]
  - Blood pressure decreased [Unknown]
  - Blood cholesterol abnormal [Unknown]
  - Blood uric acid abnormal [Unknown]
  - Decreased appetite [Unknown]
  - Influenza [Not Recovered/Not Resolved]
  - Rhinorrhoea [Not Recovered/Not Resolved]
  - Sneezing [Not Recovered/Not Resolved]
  - Pain [Not Recovered/Not Resolved]
  - Cough [Not Recovered/Not Resolved]
  - Blood cholesterol increased [None]
